FAERS Safety Report 4435364-6 (Version None)
Quarter: 2004Q3

REPORT INFORMATION
  Report Type: 
  Country: None (occurrence: None)
  Receive Date: 20040826
  Receipt Date: 20040817
  Transmission Date: 20050211
  Serious: Yes (Hospitalization)
  Sender: FDA-Public Use
  Company Number: 200411793GDS

PATIENT
  Age: 75 Year
  Sex: Male

DRUGS (10)
  1. ADALAT [Suspect]
     Indication: HYPERTENSION
     Dosage: 20 MG, QD, ORAL
     Route: 048
     Dates: start: 20020101, end: 20040430
  2. MICARDIS [Suspect]
     Indication: HYPERTENSION
     Dosage: 40 MG, QD, ORAL
     Route: 048
     Dates: start: 20040322, end: 20040430
  3. MOIOPAMIN 300 (UNCODEABLE ^UNCLASSIFIABLE^) [Suspect]
     Indication: UROGRAPHY
     Dosage: 100 MG, TOTAL DAILY, INTRAVENOUS
     Route: 042
     Dates: start: 20040426
  4. EBRANTIL [Concomitant]
  5. MUCODYNE [Concomitant]
  6. LOXONIN [Concomitant]
  7. TRANSAMIN [Concomitant]
  8. CEFZON [Concomitant]
  9. ZYLORIC [Concomitant]
  10. FLIVAS [Concomitant]

REACTIONS (9)
  - ANOREXIA [None]
  - DEHYDRATION [None]
  - HEPATIC FUNCTION ABNORMAL [None]
  - JAUNDICE [None]
  - MALAISE [None]
  - NEPHROLITHIASIS [None]
  - PHARYNGOLARYNGEAL PAIN [None]
  - PYREXIA [None]
  - RENAL FAILURE ACUTE [None]
